FAERS Safety Report 13637517 (Version 11)
Quarter: 2018Q2

REPORT INFORMATION
  Report Type: Spontaneous
  Country: CA (occurrence: CA)
  Receive Date: 20170609
  Receipt Date: 20180426
  Transmission Date: 20180711
  Serious: Yes (Other)
  Sender: FDA-Public Use
  Company Number: CA-CELLTRION INC.-2017CA007367

PATIENT

DRUGS (6)
  1. INFLECTRA [Suspect]
     Active Substance: INFLIXIMAB-DYYB
     Dosage: 10 MG/KG, EVERY 6 WEEKS
     Route: 042
     Dates: start: 20180306, end: 20180306
  2. INFLECTRA [Suspect]
     Active Substance: INFLIXIMAB-DYYB
     Indication: COLITIS ULCERATIVE
     Dosage: 600 MG, EVERY 0,2,6 WEEKS, THEN EVERY 8 WEEKS
     Route: 042
     Dates: start: 20170428, end: 20180306
  3. INFLECTRA [Suspect]
     Active Substance: INFLIXIMAB-DYYB
     Dosage: 10 MG/KG, EVERY 6 WEEKS
     Route: 042
     Dates: start: 20180306
  4. INFLECTRA [Suspect]
     Active Substance: INFLIXIMAB-DYYB
     Dosage: UNK
     Route: 065
     Dates: start: 20180123, end: 20180123
  5. INFLECTRA [Suspect]
     Active Substance: INFLIXIMAB-DYYB
     Dosage: 1150 MG, THEN EVERY 6 WEEKS
     Route: 042
     Dates: start: 20171212, end: 20171212
  6. PREDNISONE. [Concomitant]
     Active Substance: PREDNISONE
     Dosage: 40 MG TAPERING 5 MG EACH WEEK UNTIL TAPERING 5 MG EACH WEEK UNTIL
     Route: 065
     Dates: start: 201702

REACTIONS (5)
  - Drug effect incomplete [Unknown]
  - Weight decreased [Unknown]
  - Underdose [Unknown]
  - Incorrect dose administered [Unknown]
  - Arthralgia [Not Recovered/Not Resolved]

NARRATIVE: CASE EVENT DATE: 20170512
